FAERS Safety Report 16004226 (Version 1)
Quarter: 2019Q1

REPORT INFORMATION
  Report Type: Spontaneous
  Country: US (occurrence: US)
  Receive Date: 20190226
  Receipt Date: 20190226
  Transmission Date: 20190418
  Serious: No
  Sender: FDA-Public Use
  Company Number: US-ORPHAN EUROPE-2063198

PATIENT
  Age: 59 Year
  Sex: Female

DRUGS (1)
  1. CYSTADANE [Suspect]
     Active Substance: BETAINE
     Indication: PRODUCT USED FOR UNKNOWN INDICATION
     Route: 048

REACTIONS (3)
  - Decreased appetite [Recovered/Resolved]
  - Nasopharyngitis [Recovering/Resolving]
  - Product dose omission [Recovered/Resolved]

NARRATIVE: CASE EVENT DATE: 20190101
